FAERS Safety Report 23411196 (Version 1)
Quarter: 2024Q1

REPORT INFORMATION
  Report Type: Spontaneous
  Country: US (occurrence: US)
  Receive Date: 20240117
  Receipt Date: 20240117
  Transmission Date: 20240410
  Serious: No
  Sender: FDA-Public Use
  Company Number: US-SK LIFE SCIENCE, INC-SKPVG-2023-000418

PATIENT

DRUGS (3)
  1. XCOPRI [Suspect]
     Active Substance: CENOBAMATE
     Indication: Cerebral palsy
     Dosage: UNK
     Route: 048
     Dates: start: 20230317
  2. XCOPRI [Suspect]
     Active Substance: CENOBAMATE
     Dosage: 50 MILLIGRAM, ONCE DAILY AT NIGHT
     Route: 048
  3. CLOBAZAM [Concomitant]
     Active Substance: CLOBAZAM
     Indication: Product used for unknown indication
     Dosage: 30 MILLIGRAM, BID, MORNING AND NIGHT
     Route: 065

REACTIONS (5)
  - Feeding disorder [Not Recovered/Not Resolved]
  - Off label use [Not Recovered/Not Resolved]
  - Off label use [Not Recovered/Not Resolved]
  - Asthenia [Not Recovered/Not Resolved]
  - Dyspnoea [Not Recovered/Not Resolved]
